FAERS Safety Report 4536577-5 (Version None)
Quarter: 2004Q4

REPORT INFORMATION
  Report Type: 
  Country: None (occurrence: None)
  Receive Date: 20041222
  Receipt Date: 20041222
  Transmission Date: 20050328
  Serious: Yes (Hospitalization)
  Sender: FDA-Public Use
  Company Number: None

PATIENT
  Age: 64 Year
  Sex: Male
  Weight: 90 kg

DRUGS (2)
  1. IRINOTECAN [Suspect]
     Indication: CHEMOTHERAPY
     Dosage: 261 MG, QD X 1 , IV
     Route: 042
     Dates: start: 20041207, end: 20041214
  2. IRINOTECAN [Suspect]
     Indication: MEDULLARY THYROID CANCER
     Dosage: 261 MG, QD X 1 , IV
     Route: 042
     Dates: start: 20041207, end: 20041214

REACTIONS (4)
  - ABDOMINAL PAIN [None]
  - DIARRHOEA [None]
  - GASTROINTESTINAL DISORDER [None]
  - VOMITING [None]
